FAERS Safety Report 26000462 (Version 1)
Quarter: 2025Q4

REPORT INFORMATION
  Report Type: Spontaneous
  Country: US (occurrence: US)
  Receive Date: 20251105
  Receipt Date: 20251105
  Transmission Date: 20260118
  Serious: No
  Sender: ANI
  Company Number: US-ANIPHARMA-2025-US-039483

PATIENT
  Age: 69 Year
  Sex: Female
  Weight: 104.33 kg

DRUGS (10)
  1. CORTICOTROPIN [Suspect]
     Active Substance: CORTICOTROPIN
     Indication: Parophthalmia
     Dosage: 80U, THEN DECREASED TO 40U AROUND 14-MAR-2025, THEN 20U (0.25 ML) TWICE A WEEK FOR 6 WKS ON 28-JUL-2
     Route: 058
     Dates: start: 202502
  2. OZEMPIC [Concomitant]
     Active Substance: SEMAGLUTIDE
  3. METOPROLOL [Concomitant]
     Active Substance: METOPROLOL
  4. METFORMIN [Concomitant]
     Active Substance: METFORMIN HYDROCHLORIDE
  5. ISOSORBIDE MONONITRATE [Concomitant]
     Active Substance: ISOSORBIDE MONONITRATE
  6. ATORVASTATIN [Concomitant]
     Active Substance: ATORVASTATIN
  7. EZETIMIBE [Concomitant]
     Active Substance: EZETIMIBE
  8. JARDIANCE [Concomitant]
     Active Substance: EMPAGLIFLOZIN
  9. ASPIRIN [Concomitant]
     Active Substance: ASPIRIN
  10. Women^s Formula One a Day Multivitamin [Concomitant]

REACTIONS (4)
  - Insomnia [Recovered/Resolved]
  - Blood glucose increased [Not Recovered/Not Resolved]
  - Diplopia [Recovered/Resolved]
  - Contraindicated product administered [Not Recovered/Not Resolved]

NARRATIVE: CASE EVENT DATE: 20250201
